FAERS Safety Report 9707657 (Version 1)
Quarter: 2013Q4

REPORT INFORMATION
  Report Type: Spontaneous
  Country: US (occurrence: US)
  Receive Date: 20131125
  Receipt Date: 20131125
  Transmission Date: 20140711
  Serious: Yes (Other)
  Sender: FDA-Public Use
  Company Number: US-TEVA-377971USA

PATIENT
  Age: 33 Year
  Sex: Female
  Weight: 108.05 kg

DRUGS (2)
  1. PARAGARD 380A [Suspect]
     Indication: CONTRACEPTION
     Route: 015
     Dates: start: 20120822, end: 20121127
  2. LANTUS [Concomitant]

REACTIONS (3)
  - Device dislocation [Recovered/Resolved]
  - Medical device complication [Recovered/Resolved]
  - Pelvic pain [Recovered/Resolved]
